FAERS Safety Report 22599062 (Version 3)
Quarter: 2024Q1

REPORT INFORMATION
  Report Type: Report from Study
  Country: US (occurrence: US)
  Receive Date: 20230614
  Receipt Date: 20240327
  Transmission Date: 20240409
  Serious: Yes (Hospitalization, Other)
  Sender: FDA-Public Use
  Company Number: US-ABBVIE-5285897

PATIENT
  Age: 70 Year
  Sex: Female

DRUGS (2)
  1. IMBRUVICA [Suspect]
     Active Substance: IBRUTINIB
     Indication: Waldenstrom^s macroglobulinaemia
     Dosage: IMBRUVICA 140 MG,
     Route: 048
     Dates: start: 20190124
  2. IMBRUVICA [Suspect]
     Active Substance: IBRUTINIB
     Indication: Waldenstrom^s macroglobulinaemia
     Dosage: IMBRUVICA 420 MG
     Route: 048
     Dates: start: 20180628, end: 20190124

REACTIONS (18)
  - Pelvic fracture [Unknown]
  - Upper limb fracture [Unknown]
  - Wrist fracture [Unknown]
  - Fall [Unknown]
  - Contusion [Unknown]
  - Anaemia [Unknown]
  - Fall [Unknown]
  - Abdominal discomfort [Unknown]
  - Hand fracture [Unknown]
  - Neuropathy peripheral [Unknown]
  - Skin cancer [Unknown]
  - Loss of personal independence in daily activities [Unknown]
  - Pain [Unknown]
  - General physical health deterioration [Unknown]
  - Weight bearing difficulty [Unknown]
  - Depressed mood [Unknown]
  - Depression [Unknown]
  - Osteoporosis [Unknown]

NARRATIVE: CASE EVENT DATE: 20230527
